FAERS Safety Report 7141944-X (Version None)
Quarter: 2010Q4

REPORT INFORMATION
  Report Type: 
  Country: None (occurrence: None)
  Receive Date: 20101207
  Receipt Date: 20101130
  Transmission Date: 20110411
  Serious: Yes (Other)
  Sender: FDA-Public Use
  Company Number: US-NAPPMUNDI-USA-2010-0055007

PATIENT
  Sex: Female

DRUGS (1)
  1. OXYCONTIN [Suspect]
     Indication: MEDICAL DEVICE PAIN
     Dosage: 120 MG, TID
     Route: 048
     Dates: start: 19970101

REACTIONS (4)
  - BLINDNESS TRANSIENT [None]
  - DRUG WITHDRAWAL SYNDROME [None]
  - EYE DISORDER [None]
  - HEADACHE [None]
